FAERS Safety Report 8853669 (Version 2)
Quarter: 2012Q4

REPORT INFORMATION
  Report Type: Report from Study
  Country: SE (occurrence: SE)
  Receive Date: 20121023
  Receipt Date: 20121109
  Transmission Date: 20130627
  Serious: Yes (Death)
  Sender: FDA-Public Use
  Company Number: SE-GENZYME-CLOF-1002289

PATIENT
  Age: 13 Year
  Sex: Female
  Weight: 54.7 kg

DRUGS (6)
  1. EVOLTRA [Suspect]
     Indication: ACUTE LYMPHOCYTIC LEUKAEMIA
     Dosage: 40 mg/m2, qd, 64 mg/dose in 5 days
     Route: 042
     Dates: start: 20120123, end: 20120127
  2. NEXIUM [Concomitant]
     Indication: PRODUCT USED FOR UNKNOWN INDICATION
     Dosage: 20 mg, UNK
     Route: 065
     Dates: start: 20120219
  3. EMGESAN [Concomitant]
     Indication: PRODUCT USED FOR UNKNOWN INDICATION
     Dosage: 500 mg, UNK
     Route: 065
     Dates: start: 20111117
  4. BACTRIM [Concomitant]
     Indication: PROPHYLAXIS
     Dosage: UNK, 1600/320 Sat, Sun
     Route: 065
     Dates: start: 20120218
  5. VALCYTE [Concomitant]
     Indication: PROPHYLAXIS
     Dosage: 1800 mg, UNK
     Route: 065
     Dates: start: 20120323
  6. NOXAFIL [Concomitant]
     Indication: PROPHYLAXIS
     Dosage: 600 mg, UNK
     Route: 065
     Dates: start: 20120212

REACTIONS (1)
  - Acute lymphocytic leukaemia [Fatal]
